FAERS Safety Report 9101939 (Version 1)
Quarter: 2013Q1

REPORT INFORMATION
  Report Type: Spontaneous
  Country: US (occurrence: US)
  Receive Date: 20130218
  Receipt Date: 20130218
  Transmission Date: 20140127
  Serious: Yes (Other)
  Sender: FDA-Public Use
  Company Number: US-AMGEN-USASP2013009584

PATIENT
  Age: 59 Year
  Sex: Female

DRUGS (4)
  1. PROLIA [Suspect]
     Indication: OSTEOPOROSIS
     Dosage: UNK
     Dates: start: 20120624
  2. MYFORTIC [Concomitant]
  3. PREDNISONE [Concomitant]
  4. IMMUNOGLOBULIN                     /00025201/ [Concomitant]
     Dosage: 100 G, Q4WK
     Route: 042
     Dates: start: 201103

REACTIONS (10)
  - Sinus disorder [Unknown]
  - Nasal septal operation [Unknown]
  - Conjunctivitis [Unknown]
  - Haemophilus infection [Unknown]
  - Dacryocystitis [Unknown]
  - Lung disorder [Unknown]
  - White blood cell count decreased [Unknown]
  - CD4 lymphocytes decreased [Unknown]
  - T-lymphocyte count decreased [Unknown]
  - CD8 lymphocytes decreased [Unknown]
